FAERS Safety Report 7998447-X (Version None)
Quarter: 2011Q4

REPORT INFORMATION
  Report Type: 
  Country: None (occurrence: None)
  Receive Date: 20111221
  Receipt Date: 20111104
  Transmission Date: 20120403
  Serious: No
  Sender: FDA-Public Use
  Company Number: US-GLAXOSMITHKLINE-A0952027A

PATIENT
  Age: 66 Year
  Sex: Female

DRUGS (7)
  1. LOVAZA [Suspect]
     Indication: BLOOD TRIGLYCERIDES INCREASED
     Dosage: 2CAP TWICE PER DAY
     Route: 048
     Dates: start: 20110501, end: 20110919
  2. ZOLOFT [Concomitant]
  3. SEROQUEL [Concomitant]
  4. LASIX [Concomitant]
  5. GLYBURIDE [Concomitant]
  6. XANAX [Concomitant]
  7. ALLOPURINOL [Concomitant]

REACTIONS (2)
  - BLOOD CHOLESTEROL INCREASED [None]
  - HIGH DENSITY LIPOPROTEIN DECREASED [None]
